FAERS Safety Report 18365562 (Version 1)
Quarter: 2020Q4

REPORT INFORMATION
  Report Type: Spontaneous
  Country: US (occurrence: US)
  Receive Date: 20201009
  Receipt Date: 20201009
  Transmission Date: 20210114
  Serious: No
  Sender: FDA-Public Use
  Company Number: US-TEVA-2020-US-1836731

PATIENT
  Sex: Female

DRUGS (1)
  1. ALPRAZOLAM TEVA [Suspect]
     Active Substance: ALPRAZOLAM
     Indication: GENERALISED ANXIETY DISORDER
     Dosage: I TAKE HALF A PILL 2-3 TIMES A DAY
     Route: 048

REACTIONS (4)
  - Panic disorder [Unknown]
  - Product physical issue [Unknown]
  - Anxiety [Unknown]
  - Incorrect dose administered [Unknown]
